FAERS Safety Report 8268590-9 (Version None)
Quarter: 2012Q2

REPORT INFORMATION
  Report Type: 
  Country: None (occurrence: None)
  Receive Date: 20120409
  Receipt Date: 20120404
  Transmission Date: 20120825
  Serious: Yes (Hospitalization)
  Sender: FDA-Public Use
  Company Number: IT-ABBOTT-12P-083-0922082-00

PATIENT
  Sex: Male

DRUGS (6)
  1. DEPAKENE [Suspect]
     Indication: BORDERLINE PERSONALITY DISORDER
     Dosage: GASTRO-RESISTANT TABLET, 1 IN 1 D
     Route: 048
  2. ZYPREXA [Suspect]
     Dosage: COATED, ONCE
     Route: 048
     Dates: start: 20110130, end: 20110130
  3. DIAZEPAM [Concomitant]
     Indication: PRODUCT USED FOR UNKNOWN INDICATION
  4. DEPAKENE [Suspect]
     Dosage: ONCE, GASTRO-RESISTANT TABLET
     Route: 048
     Dates: start: 20120130, end: 20120130
  5. ZYPREXA [Suspect]
     Indication: BORDERLINE PERSONALITY DISORDER
     Dosage: COATED
     Route: 048
  6. LORAZEPAM [Suspect]
     Indication: INTENTIONAL OVERDOSE
     Dosage: ONCE
     Route: 048
     Dates: start: 20120130, end: 20120130

REACTIONS (4)
  - MULTIPLE DRUG OVERDOSE INTENTIONAL [None]
  - SINUS BRADYCARDIA [None]
  - SOPOR [None]
  - HYPOTENSION [None]
